FAERS Safety Report 6633126-2 (Version None)
Quarter: 2010Q1

REPORT INFORMATION
  Report Type: 
  Country: None (occurrence: None)
  Receive Date: 20100312
  Receipt Date: 20100303
  Transmission Date: 20100710
  Serious: Yes (Other)
  Sender: FDA-Public Use
  Company Number: US-ABBOTT-10P-163-0618885-02

PATIENT
  Sex: Female
  Weight: 67.4 kg

DRUGS (14)
  1. HUMIRA [Suspect]
     Indication: RHEUMATOID ARTHRITIS
     Route: 058
     Dates: start: 20010302, end: 20091218
  2. CALCIUM [Concomitant]
     Indication: MINERAL SUPPLEMENTATION
     Route: 048
     Dates: start: 19970101
  3. MULTI-VITAMIN [Concomitant]
     Indication: VITAMIN SUPPLEMENTATION
     Route: 048
     Dates: start: 19950927
  4. MIRALAX [Concomitant]
     Indication: CONSTIPATION
     Route: 048
     Dates: start: 20030329
  5. AVAPRO [Concomitant]
     Indication: HYPERTENSION
     Route: 048
     Dates: start: 20040201
  6. ASTELIN [Concomitant]
     Indication: HYPERSENSITIVITY
     Route: 045
     Dates: start: 20020301
  7. LEXAPRO [Concomitant]
     Indication: DEPRESSION
     Route: 048
     Dates: start: 20020901
  8. ACETAMINOPHEN ES [Concomitant]
     Indication: HEADACHE
     Route: 048
     Dates: start: 20000801
  9. LAMECTIAL [Concomitant]
     Indication: DEPRESSION
     Route: 048
     Dates: start: 20060501
  10. PROTONIX [Concomitant]
     Indication: GASTRIC ULCER
     Route: 048
     Dates: start: 20070829
  11. PROZAC [Concomitant]
     Indication: DEPRESSION
     Route: 048
     Dates: start: 20070901
  12. WELLBUTRIN [Concomitant]
     Indication: DEPRESSION
     Route: 048
     Dates: start: 20070901
  13. EFFEXOR [Concomitant]
     Indication: DEPRESSION
     Route: 048
     Dates: start: 20080504
  14. HYDROCODONE [Concomitant]
     Indication: RHEUMATOID ARTHRITIS
     Route: 048
     Dates: start: 20060101

REACTIONS (1)
  - MULTIPLE MYELOMA [None]
